FAERS Safety Report 13118375 (Version 2)
Quarter: 2017Q1

REPORT INFORMATION
  Report Type: Spontaneous
  Country: IT (occurrence: IT)
  Receive Date: 20170116
  Receipt Date: 20170120
  Transmission Date: 20170428
  Serious: Yes (Hospitalization)
  Sender: FDA-Public Use
  Company Number: IT-BAYER-2017-005108

PATIENT
  Age: 31 Year
  Sex: Male

DRUGS (2)
  1. ASPIRINA 500 MG [Suspect]
     Active Substance: ASPIRIN
     Indication: OROPHARYNGEAL PAIN
     Dosage: 500 MG, ONCE
     Dates: start: 20161225, end: 20161225
  2. ASPIRINA CON VITAMINA C BAYER [Suspect]
     Active Substance: ASCORBIC ACID\ASPIRIN

REACTIONS (3)
  - Drug hypersensitivity [Recovered/Resolved]
  - Pyrexia [Recovered/Resolved]
  - Epistaxis [None]

NARRATIVE: CASE EVENT DATE: 20161225
